FAERS Safety Report 10026930 (Version 2)
Quarter: 2014Q1

REPORT INFORMATION
  Report Type: Spontaneous
  Country: CN (occurrence: CN)
  Receive Date: 20140321
  Receipt Date: 20140324
  Transmission Date: 20141002
  Serious: Yes (Life-Threatening)
  Sender: FDA-Public Use
  Company Number: CN-ASTRAZENECA-2014SE19189

PATIENT
  Age: 73 Year
  Sex: Male

DRUGS (2)
  1. PULMICORT RESPULES [Suspect]
     Indication: CHRONIC OBSTRUCTIVE PULMONARY DISEASE
     Dosage: 4 ML
     Route: 055
     Dates: start: 20140228
  2. KEBITE [Concomitant]
     Indication: CHRONIC OBSTRUCTIVE PULMONARY DISEASE
     Dosage: 2.5 ML
     Route: 055
     Dates: start: 20140228

REACTIONS (13)
  - Wheezing [Recovering/Resolving]
  - Asthma [Recovering/Resolving]
  - Pectus excavatum [Recovering/Resolving]
  - Dyspnoea [Recovering/Resolving]
  - Hyperhidrosis [Recovering/Resolving]
  - Heart rate increased [Recovering/Resolving]
  - Blood pressure increased [Recovering/Resolving]
  - Rhonchi [Recovering/Resolving]
  - Rales [Recovering/Resolving]
  - Oxygen saturation decreased [Recovering/Resolving]
  - Tic [Recovering/Resolving]
  - Rales [Recovering/Resolving]
  - Agitation [Recovering/Resolving]
